FAERS Safety Report 11521256 (Version 1)
Quarter: 2015Q3

REPORT INFORMATION
  Report Type: Spontaneous
  Country: CA (occurrence: CA)
  Receive Date: 20150918
  Receipt Date: 20150918
  Transmission Date: 20151125
  Serious: Yes (Other)
  Sender: FDA-Public Use
  Company Number: CA-PFIZER INC-2015303954

PATIENT
  Age: 59 Year
  Sex: Female
  Weight: 37 kg

DRUGS (4)
  1. DEXAMETHASONE. [Concomitant]
     Active Substance: DEXAMETHASONE
     Dosage: DOSAGE FORM NOT SPECIFIED
  2. IRINOTECAN HCL [Suspect]
     Active Substance: IRINOTECAN HYDROCHLORIDE
     Indication: PANCREATIC CARCINOMA
     Dosage: 185 MG, CYCLIC: 1 EVERY 2 WEEKS
     Route: 042
  3. LEUCOVORIN. [Concomitant]
     Active Substance: LEUCOVORIN
     Dosage: DOSAGE FORM NOT SPECIFIED
  4. ONDANSETRON [Concomitant]
     Active Substance: ONDANSETRON
     Dosage: DOSAGE FORM NOT SPECIFIED

REACTIONS (2)
  - Nausea [Recovered/Resolved]
  - Speech disorder [Recovered/Resolved]
